FAERS Safety Report 17652326 (Version 3)
Quarter: 2020Q4

REPORT INFORMATION
  Report Type: Spontaneous
  Country: US (occurrence: US)
  Receive Date: 20200409
  Receipt Date: 20201023
  Transmission Date: 20210113
  Serious: Yes (Death, Hospitalization, Other)
  Sender: FDA-Public Use
  Company Number: US-ASTRAZENECA-2020SE47347

PATIENT
  Age: 22415 Day
  Sex: Male
  Weight: 149.7 kg

DRUGS (33)
  1. PRILOSEC [Suspect]
     Active Substance: OMEPRAZOLE MAGNESIUM
     Indication: GASTROOESOPHAGEAL REFLUX DISEASE
     Route: 048
  2. CALCIUM ACETATE. [Concomitant]
     Active Substance: CALCIUM ACETATE
  3. METOLAZONE. [Concomitant]
     Active Substance: METOLAZONE
  4. HUMULIN NOS [Concomitant]
     Active Substance: INSULIN HUMAN
  5. ATORVASTATIN [Concomitant]
     Active Substance: ATORVASTATIN
  6. HEPARIN [Concomitant]
     Active Substance: HEPARIN SODIUM
  7. PRILOSEC OTC [Suspect]
     Active Substance: OMEPRAZOLE MAGNESIUM
     Indication: GASTROOESOPHAGEAL REFLUX DISEASE
     Route: 048
     Dates: start: 2008, end: 2017
  8. GABAPENTIN. [Concomitant]
     Active Substance: GABAPENTIN
     Indication: NEUROPATHY PERIPHERAL
     Dates: end: 2020
  9. VITAMIN D [Concomitant]
     Active Substance: VITAMIN D NOS
  10. ASPIRIN. [Concomitant]
     Active Substance: ASPIRIN
  11. COLACE [Concomitant]
     Active Substance: DOCUSATE SODIUM
  12. HYDRALAZINE [Concomitant]
     Active Substance: HYDRALAZINE HYDROCHLORIDE
  13. NIFEDIPINE. [Concomitant]
     Active Substance: NIFEDIPINE
  14. TORSEMIDE. [Concomitant]
     Active Substance: TORSEMIDE
  15. DEXTROSE. [Concomitant]
     Active Substance: DEXTROSE
  16. SENOKOT [Concomitant]
     Active Substance: SENNOSIDES
  17. COREG [Concomitant]
     Active Substance: CARVEDILOL
  18. LISINOPRIL. [Concomitant]
     Active Substance: LISINOPRIL
  19. ZAROXOLYN [Concomitant]
     Active Substance: METOLAZONE
  20. ALBUTEROL. [Concomitant]
     Active Substance: ALBUTEROL
  21. PRILOSEC [Suspect]
     Active Substance: OMEPRAZOLE MAGNESIUM
     Indication: GASTROOESOPHAGEAL REFLUX DISEASE
     Route: 048
     Dates: start: 1990, end: 2017
  22. IMDUR [Concomitant]
     Active Substance: ISOSORBIDE MONONITRATE
  23. NITROGLYCERIN. [Concomitant]
     Active Substance: NITROGLYCERIN
  24. ISOSORBIDE. [Concomitant]
     Active Substance: ISOSORBIDE
  25. PRILOSEC [Suspect]
     Active Substance: OMEPRAZOLE MAGNESIUM
     Indication: GASTROOESOPHAGEAL REFLUX DISEASE
     Route: 048
     Dates: start: 2008, end: 2017
  26. PLAVIX [Concomitant]
     Active Substance: CLOPIDOGREL BISULFATE
  27. PRILOSEC OTC [Suspect]
     Active Substance: OMEPRAZOLE MAGNESIUM
     Indication: GASTROOESOPHAGEAL REFLUX DISEASE
     Route: 048
     Dates: start: 1990, end: 2017
  28. INSULIN [Concomitant]
     Active Substance: INSULIN NOS
     Indication: TYPE 2 DIABETES MELLITUS
     Dates: start: 2008, end: 2020
  29. OXYCODONE [Concomitant]
     Active Substance: OXYCODONE
  30. LIPITOR [Concomitant]
     Active Substance: ATORVASTATIN CALCIUM
  31. ALLOPURINOL. [Concomitant]
     Active Substance: ALLOPURINOL
  32. PROTONIX [Concomitant]
     Active Substance: PANTOPRAZOLE SODIUM
  33. LASIX [Concomitant]
     Active Substance: FUROSEMIDE

REACTIONS (5)
  - End stage renal disease [Fatal]
  - Chronic kidney disease [Unknown]
  - Hyperparathyroidism secondary [Unknown]
  - Renal failure [Unknown]
  - Acute kidney injury [Unknown]

NARRATIVE: CASE EVENT DATE: 20171226
